FAERS Safety Report 7124167-X (Version None)
Quarter: 2010Q4

REPORT INFORMATION
  Report Type: 
  Country: None (occurrence: None)
  Receive Date: 20101126
  Receipt Date: 20101116
  Transmission Date: 20110411
  Serious: Yes (Other)
  Sender: FDA-Public Use
  Company Number: PHHY2010BR78507

PATIENT
  Sex: Male

DRUGS (1)
  1. RITALIN LA [Suspect]
     Dosage: 40 MG, UNK

REACTIONS (4)
  - BODY TEMPERATURE INCREASED [None]
  - DEPRESSION [None]
  - NAUSEA [None]
  - TACHYCARDIA [None]
